FAERS Safety Report 6500479-5 (Version None)
Quarter: 2009Q4

REPORT INFORMATION
  Report Type: 
  Country: None (occurrence: None)
  Receive Date: 20091216
  Receipt Date: 20091214
  Transmission Date: 20100525
  Serious: Yes (Death)
  Sender: FDA-Public Use
  Company Number: BR-JNJFOC-20091204411

PATIENT
  Sex: Male

DRUGS (1)
  1. TYLEX [Suspect]
     Indication: NEOPLASM MALIGNANT
     Dosage: ACETAMINOPHEN 500MG / CODEINE PHOSPHATE 30 MG
     Route: 065

REACTIONS (1)
  - DEATH [None]
